FAERS Safety Report 6190381-3 (Version None)
Quarter: 2009Q2

REPORT INFORMATION
  Report Type: 
  Country: None (occurrence: None)
  Receive Date: 20090514
  Receipt Date: 20090506
  Transmission Date: 20091009
  Serious: Yes (Other)
  Sender: FDA-Public Use
  Company Number: B0567387A

PATIENT
  Sex: Female
  Weight: 57.6 kg

DRUGS (13)
  1. TYVERB [Suspect]
     Indication: BREAST CANCER METASTATIC
     Dosage: 1250MG PER DAY
     Route: 048
     Dates: start: 20090129, end: 20090331
  2. XELODA [Suspect]
     Indication: BREAST CANCER METASTATIC
     Dosage: 1500MG TWICE PER DAY
     Route: 048
     Dates: start: 20090129, end: 20090331
  3. ZOMETA [Concomitant]
     Indication: METASTASES TO BONE
     Dates: start: 20090101
  4. EUCERIN [Concomitant]
     Dates: start: 20090101
  5. LIPITOR [Concomitant]
  6. IDEOS [Concomitant]
  7. ZOLPIDEM [Concomitant]
  8. IMODIUM [Concomitant]
  9. ZOFRON [Concomitant]
  10. VALOID [Concomitant]
  11. DIFENE [Concomitant]
  12. MOTILIUM [Concomitant]
  13. UNKNOWN DRUG [Concomitant]

REACTIONS (5)
  - ANAL PRURITUS [None]
  - ANORECTAL DISCOMFORT [None]
  - CANDIDIASIS [None]
  - RASH [None]
  - STAPHYLOCOCCAL INFECTION [None]
